FAERS Safety Report 9352048 (Version 2)
Quarter: 2013Q3

REPORT INFORMATION
  Report Type: Spontaneous
  Country: FR (occurrence: FR)
  Receive Date: 20130617
  Receipt Date: 20130911
  Transmission Date: 20140515
  Serious: Yes (Life-Threatening, Hospitalization, Other)
  Sender: FDA-Public Use
  Company Number: PHHY2013FR060574

PATIENT
  Age: 59 Year
  Sex: Female
  Weight: 64 kg

DRUGS (3)
  1. AFINITOR [Suspect]
     Indication: BREAST CANCER STAGE IV
     Dosage: 5 MG, QD
     Route: 048
     Dates: start: 201303, end: 20130603
  2. MYOCET [Suspect]
     Indication: BREAST CANCER STAGE IV
     Dosage: 8 COURSES AT 75 MG/M2, QD
     Route: 042
     Dates: start: 201209, end: 201301
  3. AROMASIN [Suspect]
     Indication: BREAST CANCER
     Dosage: 25 MG, QD
     Route: 048
     Dates: start: 201303

REACTIONS (7)
  - Cardiac failure [Recovering/Resolving]
  - Dyspnoea [Recovering/Resolving]
  - Ejection fraction decreased [Recovering/Resolving]
  - Asthenia [Unknown]
  - Oedema peripheral [Unknown]
  - Exercise tolerance decreased [Unknown]
  - Cough [Unknown]
